FAERS Safety Report 8397158-9 (Version None)
Quarter: 2012Q2

REPORT INFORMATION
  Report Type: 
  Country: None (occurrence: None)
  Receive Date: 20120530
  Receipt Date: 20120525
  Transmission Date: 20120825
  Serious: Yes (Hospitalization)
  Sender: FDA-Public Use
  Company Number: CA-ROCHE-1056537

PATIENT
  Sex: Female
  Weight: 55 kg

DRUGS (1)
  1. VISMODEGIB [Suspect]
     Indication: BASAL CELL CARCINOMA
     Dosage: LAST DOSE PRIOR TO SAE: ON 15 MARCH 2012
     Route: 048
     Dates: start: 20111229, end: 20120315

REACTIONS (2)
  - COLON CANCER [None]
  - THROMBOSIS [None]
